FAERS Safety Report 20775951 (Version 1)
Quarter: 2022Q2

REPORT INFORMATION
  Report Type: Spontaneous
  Country: CN (occurrence: CN)
  Receive Date: 20220502
  Receipt Date: 20220502
  Transmission Date: 20220720
  Serious: Yes (Other)
  Sender: FDA-Public Use
  Company Number: CN-NOVARTISPH-NVSC2022CN100293

PATIENT
  Age: 73 Year
  Sex: Male
  Weight: 49.5 kg

DRUGS (2)
  1. CARBAMAZEPINE [Suspect]
     Active Substance: CARBAMAZEPINE
     Indication: Trigeminal neuralgia
     Dosage: 0.2 G, QD
     Route: 048
     Dates: start: 20220415, end: 20220416
  2. DEXTROSE [Concomitant]
     Active Substance: DEXTROSE
     Indication: Solvent sensitivity
     Dosage: 250 ML, QD
     Route: 042
     Dates: start: 20220413, end: 20220420

REACTIONS (2)
  - Rash [Recovering/Resolving]
  - Pruritus [Recovering/Resolving]

NARRATIVE: CASE EVENT DATE: 20220416
